FAERS Safety Report 6612414-X (Version None)
Quarter: 2010Q1

REPORT INFORMATION
  Report Type: 
  Country: None (occurrence: None)
  Receive Date: 20100303
  Receipt Date: 20100219
  Transmission Date: 20100710
  Serious: Yes (Hospitalization, Other)
  Sender: FDA-Public Use
  Company Number: PHHY2009BR50856

PATIENT
  Sex: Male

DRUGS (14)
  1. DIOVAN [Suspect]
     Indication: HYPERTENSION
     Dosage: 1 TABLET (320 MG) PER DAY
     Route: 048
     Dates: start: 20081101
  2. DIOVAN [Suspect]
     Dosage: 160 MG
  3. DIOVAN [Suspect]
     Dosage: 80 MG, QD
  4. DIOVAN [Suspect]
     Dosage: 80 MG, BID
  5. DIOVAN [Suspect]
     Dosage: 320 MG, QD
  6. CARVEDILOL [Concomitant]
     Indication: HYPERTENSION
     Dosage: 2 TABLETS (12.5 MG) PER DAY
     Route: 048
  7. CLOPIDOGREL [Concomitant]
     Indication: ANTICOAGULANT THERAPY
     Dosage: 1 TABLET (75 MG) /DAY
     Route: 048
  8. METFORMIN HYDROCHLORIDE [Concomitant]
     Indication: DIABETES MELLITUS MALNUTRITION-RELATED
     Dosage: 1 TABLET (500 MG) /DAY
  9. GABAPENTIN [Concomitant]
     Indication: DIABETIC NEPHROPATHY
     Dosage: 1 TABLET (100 MG) /DAY
     Route: 048
  10. ALLOPURINOL [Concomitant]
     Indication: BLOOD URIC ACID INCREASED
     Dosage: 1 TABLET (100 MG)/ DAY
     Route: 048
  11. SECOTEX [Concomitant]
     Indication: MICTURITION URGENCY
     Dosage: 1 TABLET (0.4 MG) PER DAY
     Route: 048
  12. SIMVASTATIN [Concomitant]
     Indication: BLOOD CHOLESTEROL INCREASED
     Dosage: 1 TABLET (10 MG) PER DAY
     Route: 048
  13. LEXOTAN [Concomitant]
     Indication: INSOMNIA
     Dosage: 1 TABLET (3 MG) PER DAY
     Route: 048
  14. LASIX [Concomitant]
     Dosage: 40 MG

REACTIONS (5)
  - BLOOD PRESSURE INCREASED [None]
  - BRADYARRHYTHMIA [None]
  - HYPERTENSION [None]
  - HYPOTENSION [None]
  - TREATMENT NONCOMPLIANCE [None]
